FAERS Safety Report 5946770-2 (Version None)
Quarter: 2008Q4

REPORT INFORMATION
  Report Type: 
  Country: None (occurrence: None)
  Receive Date: 20081107
  Receipt Date: 20081107
  Transmission Date: 20090506
  Serious: Yes (Hospitalization)
  Sender: FDA-Public Use
  Company Number: None

PATIENT
  Age: 11 Year
  Sex: Male
  Weight: 90.8 kg

DRUGS (1)
  1. DURICEF [Suspect]
     Indication: ORTHOPEDIC PROCEDURE

REACTIONS (1)
  - TUBULOINTERSTITIAL NEPHRITIS [None]
